FAERS Safety Report 11568026 (Version 1)
Quarter: 2015Q3

REPORT INFORMATION
  Report Type: Spontaneous
  Country: US (occurrence: US)
  Receive Date: 20150916
  Receipt Date: 20150916
  Transmission Date: 20151125
  Serious: No
  Sender: FDA-Public Use
  Company Number: US-ELI_LILLY_AND_COMPANY-US200908001976

PATIENT
  Age: 76 Year
  Sex: Female

DRUGS (1)
  1. FORTEO [Suspect]
     Active Substance: TERIPARATIDE
     Dosage: 3 DOSES
     Dates: start: 20090807, end: 20090810

REACTIONS (4)
  - Neck pain [Recovered/Resolved]
  - Drug hypersensitivity [Unknown]
  - Urinary tract infection [Unknown]
  - Groin pain [Recovered/Resolved]

NARRATIVE: CASE EVENT DATE: 200908
